FAERS Safety Report 20969313 (Version 3)
Quarter: 2022Q3

REPORT INFORMATION
  Report Type: Report from Study
  Country: US (occurrence: US)
  Receive Date: 20220616
  Receipt Date: 20220801
  Transmission Date: 20221027
  Serious: No
  Sender: FDA-Public Use
  Company Number: US-NOVARTISTESTPH-NVSC2022US138599

PATIENT
  Age: 11 Year
  Sex: Female
  Weight: 61.5 kg

DRUGS (4)
  1. ARZERRA [Suspect]
     Active Substance: OFATUMUMAB
     Indication: Nephrotic syndrome
     Dosage: UNK
     Route: 065
  2. ARZERRA [Suspect]
     Active Substance: OFATUMUMAB
     Dosage: UNK (6 DOSES)
     Route: 042
     Dates: start: 20180414
  3. ARZERRA [Suspect]
     Active Substance: OFATUMUMAB
     Dosage: UNK (1 DOSE)
     Route: 042
     Dates: start: 20201109
  4. ARZERRA [Suspect]
     Active Substance: OFATUMUMAB
     Dosage: UNK
     Route: 042
     Dates: start: 20220516

REACTIONS (5)
  - Hypersensitivity [Recovered/Resolved]
  - Pruritus [Unknown]
  - Throat tightness [Unknown]
  - Urticaria [Unknown]
  - Product use in unapproved indication [Unknown]

NARRATIVE: CASE EVENT DATE: 20220516
